FAERS Safety Report 23365509 (Version 1)
Quarter: 2024Q1

REPORT INFORMATION
  Report Type: Spontaneous
  Country: US (occurrence: US)
  Receive Date: 20240104
  Receipt Date: 20240104
  Transmission Date: 20240409
  Serious: No
  Sender: FDA-Public Use
  Company Number: US-AMNEAL PHARMACEUTICALS-2023-AMRX-03897

PATIENT
  Age: 31 Year
  Sex: Female
  Weight: 93.4 kg

DRUGS (8)
  1. ACTIVELLA [Suspect]
     Active Substance: ESTRADIOL\NORETHINDRONE ACETATE
     Indication: Uterine leiomyoma
     Dosage: UNK, QD
     Route: 048
     Dates: start: 20181218, end: 20191118
  2. ACTIVELLA [Suspect]
     Active Substance: ESTRADIOL\NORETHINDRONE ACETATE
     Dosage: UNK, QD
     Route: 048
     Dates: start: 20191119, end: 20220913
  3. ELAGOLIX [Suspect]
     Active Substance: ELAGOLIX
     Indication: Uterine leiomyoma
     Dosage: UNK, QD
     Route: 048
     Dates: start: 20181218, end: 20191118
  4. ELAGOLIX [Suspect]
     Active Substance: ELAGOLIX
     Dosage: UNK, QD
     Route: 048
     Dates: start: 20191119, end: 20220913
  5. IRON DEXTRAN [Concomitant]
     Active Substance: IRON DEXTRAN
     Indication: Iron deficiency anaemia
     Dosage: 325 MILLIGRAM, QD
     Route: 065
  6. SYNTHROID [Concomitant]
     Active Substance: LEVOTHYROXINE SODIUM
     Indication: Hypothyroidism
     Dosage: 175 MICROGRAM, QD
     Route: 065
     Dates: start: 2014, end: 20220910
  7. SYNTHROID [Concomitant]
     Active Substance: LEVOTHYROXINE SODIUM
     Dosage: 150 MICROGRAM, QD
     Route: 065
     Dates: start: 20220910
  8. VITAMIN D3 [Concomitant]
     Active Substance: CHOLECALCIFEROL
     Indication: Vitamin supplementation
     Dosage: 1000 INTERNATIONAL UNIT/KILOGRAM, QD
     Route: 065

REACTIONS (1)
  - Bone density decreased [Not Recovered/Not Resolved]

NARRATIVE: CASE EVENT DATE: 20220902
